APPROVED DRUG PRODUCT: TRIENTINE HYDROCHLORIDE
Active Ingredient: TRIENTINE HYDROCHLORIDE
Strength: 250MG
Dosage Form/Route: CAPSULE;ORAL
Application: A209945 | Product #001 | TE Code: AB
Applicant: ECI PHARMACEUTICALS LLC
Approved: Aug 13, 2021 | RLD: No | RS: No | Type: RX